FAERS Safety Report 6128169-1 (Version None)
Quarter: 2009Q1

REPORT INFORMATION
  Report Type: 
  Country: None (occurrence: None)
  Receive Date: 20090323
  Receipt Date: 20090309
  Transmission Date: 20090719
  Serious: Yes (Other)
  Sender: FDA-Public Use
  Company Number: GR-ROCHE-620927

PATIENT
  Sex: Female

DRUGS (1)
  1. BONIVA [Suspect]
     Indication: DRUG USE FOR UNKNOWN INDICATION
     Dosage: FORM REPORTED AS F.C TABLET.
     Route: 048
     Dates: start: 20070801, end: 20080801

REACTIONS (1)
  - GAMMA-GLUTAMYLTRANSFERASE INCREASED [None]
